FAERS Safety Report 21184686 (Version 2)
Quarter: 2022Q3

REPORT INFORMATION
  Report Type: Spontaneous
  Country: AU (occurrence: None)
  Receive Date: 20220808
  Receipt Date: 20220819
  Transmission Date: 20221027
  Serious: Yes (Life-Threatening, Hospitalization, Other)
  Sender: FDA-Public Use
  Company Number: 2022A230770

PATIENT
  Age: 746 Month
  Sex: Female

DRUGS (5)
  1. BREZTRI [Suspect]
     Active Substance: BUDESONIDE\FORMOTEROL\GLYCOPYRROLATE
     Indication: Asthma
     Dosage: 160/7.2/5 UNKNOWN FREQUENCY
     Route: 055
  2. BREZTRI [Suspect]
     Active Substance: BUDESONIDE\FORMOTEROL\GLYCOPYRROLATE
     Indication: Routine health maintenance
     Dosage: 160/7.2/5 UNKNOWN FREQUENCY
     Route: 055
  3. BREZTRI [Suspect]
     Active Substance: BUDESONIDE\FORMOTEROL\GLYCOPYRROLATE
     Indication: Asthma
     Dosage: 2 PUFF BID
     Route: 055
  4. BREZTRI [Suspect]
     Active Substance: BUDESONIDE\FORMOTEROL\GLYCOPYRROLATE
     Indication: Routine health maintenance
     Dosage: 2 PUFF BID
     Route: 055
  5. BRICANYL [Concomitant]
     Active Substance: TERBUTALINE SULFATE
     Indication: Dyspnoea
     Dosage: 2 PUFFS DAILY AS REQUIRED

REACTIONS (4)
  - Asthma [Recovered/Resolved with Sequelae]
  - Dyspnoea [Unknown]
  - Incorrect dose administered by device [Unknown]
  - Device occlusion [Unknown]

NARRATIVE: CASE EVENT DATE: 20220501
